FAERS Safety Report 8082955-X (Version None)
Quarter: 2012Q1

REPORT INFORMATION
  Report Type: 
  Country: None (occurrence: None)
  Receive Date: 20120127
  Receipt Date: 20110310
  Transmission Date: 20120608
  Serious: No
  Sender: FDA-Public Use
  Company Number: US-ABBOTT-11P-163-0710241-00

PATIENT
  Age: 46 Year
  Sex: Female

DRUGS (6)
  1. HUMIRA [Suspect]
     Indication: CROHN'S DISEASE
     Dates: start: 20110224, end: 20110224
  2. CIPROFLOXACIN [Concomitant]
     Indication: CYSTITIS
  3. HUMIRA [Suspect]
  4. VITAMIN TAB [Concomitant]
     Indication: PRODUCT USED FOR UNKNOWN INDICATION
  5. BALSALAZIDE DISODIUM [Concomitant]
     Indication: COLITIS
  6. HUMIRA [Suspect]
     Dates: start: 20110303, end: 20110303

REACTIONS (12)
  - NERVOUSNESS [None]
  - DRY MOUTH [None]
  - INFLUENZA LIKE ILLNESS [None]
  - INSOMNIA [None]
  - NAUSEA [None]
  - CYSTITIS [None]
  - NASOPHARYNGITIS [None]
  - HOT FLUSH [None]
  - DIARRHOEA [None]
  - FATIGUE [None]
  - PALPITATIONS [None]
  - ABDOMINAL PAIN [None]
